FAERS Safety Report 4903344-X (Version None)
Quarter: 2006Q1

REPORT INFORMATION
  Report Type: 
  Country: None (occurrence: None)
  Receive Date: 20060208
  Receipt Date: 20060127
  Transmission Date: 20060701
  Serious: Yes (Death)
  Sender: FDA-Public Use
  Company Number: US-JNJFOC-20060200163

PATIENT
  Sex: Male

DRUGS (2)
  1. REOPRO [Suspect]
     Indication: DRUG USE FOR UNKNOWN INDICATION
     Dosage: 2 MG/ML, 5 ML
     Route: 042
  2. LYTICS [Concomitant]

REACTIONS (1)
  - HAEMORRHAGE INTRACRANIAL [None]
